FAERS Safety Report 8523715-2 (Version None)
Quarter: 2012Q3

REPORT INFORMATION
  Report Type: 
  Country: None (occurrence: None)
  Receive Date: 20120720
  Receipt Date: 20120712
  Transmission Date: 20120928
  Serious: Yes (Other)
  Sender: FDA-Public Use
  Company Number: CA-JNJFOC-20120707544

PATIENT
  Sex: Female

DRUGS (1)
  1. REMICADE [Suspect]
     Indication: RHEUMATOID ARTHRITIS
     Dosage: 18-JUN (YEAR UNSPECIFIED)  RECEIVED 50 INFUSIONS
     Route: 042

REACTIONS (1)
  - BUNION [None]
